FAERS Safety Report 25646029 (Version 1)
Quarter: 2025Q3

REPORT INFORMATION
  Report Type: Spontaneous
  Country: CN (occurrence: CN)
  Receive Date: 20250805
  Receipt Date: 20250805
  Transmission Date: 20251021
  Serious: Yes (Other)
  Sender: NOVARTIS
  Company Number: CN-002147023-NVSC2025CN123710

PATIENT
  Age: 70 Year
  Sex: Female
  Weight: 36 kg

DRUGS (1)
  1. TOBREX [Suspect]
     Active Substance: TOBRAMYCIN
     Indication: Ulcerative keratitis
     Dosage: 0.1 ML, Q2H (5 TIMES A DAY)
     Route: 047
     Dates: start: 20250727, end: 20250727

REACTIONS (4)
  - Endophthalmitis [Recovering/Resolving]
  - Eye irritation [Recovering/Resolving]
  - Eye pain [Recovering/Resolving]
  - Ocular discomfort [Recovering/Resolving]

NARRATIVE: CASE EVENT DATE: 20250727
